FAERS Safety Report 7647624-6 (Version None)
Quarter: 2011Q3

REPORT INFORMATION
  Report Type: 
  Country: None (occurrence: None)
  Receive Date: 20110801
  Receipt Date: 20110727
  Transmission Date: 20111222
  Serious: Yes (Death)
  Sender: FDA-Public Use
  Company Number: JP-EISAI INC-E2020-09497-CLI-JP

PATIENT
  Sex: Female

DRUGS (6)
  1. ADALAT [Concomitant]
     Dosage: 20 DF
     Route: 048
     Dates: end: 20101020
  2. METHYLCOBAL [Concomitant]
     Dosage: 500 DF
     Route: 048
     Dates: start: 20070627, end: 20101020
  3. ARICEPT [Suspect]
     Indication: DEMENTIA ALZHEIMER'S TYPE
     Route: 048
     Dates: start: 20100925, end: 20101006
  4. ARICEPT [Suspect]
     Route: 048
     Dates: start: 20101007, end: 20101020
  5. DEPAS [Concomitant]
     Dosage: 0.5 DF
     Route: 048
     Dates: start: 20070314, end: 20101020
  6. FERROUS CITRATE [Concomitant]
     Dosage: 50 DF
     Route: 048
     Dates: start: 20100615, end: 20101020

REACTIONS (1)
  - DECREASED APPETITE [None]
